FAERS Safety Report 26114765 (Version 1)
Quarter: 2025Q4

REPORT INFORMATION
  Report Type: Spontaneous
  Country: US (occurrence: None)
  Receive Date: 20251202
  Receipt Date: 20251202
  Transmission Date: 20260118
  Serious: Yes (Other)
  Sender: UCB
  Company Number: US-UCBSA-2025075644

PATIENT
  Age: 51 Year

DRUGS (8)
  1. BRIVARACETAM [Suspect]
     Active Substance: BRIVARACETAM
     Indication: Seizure
     Dosage: 50 MILLIGRAM, 2X/DAY (BID)
  2. LAMOTRIGINE [Suspect]
     Active Substance: LAMOTRIGINE
     Indication: Seizure
     Dosage: 150 MILLIGRAM, 2X/DAY (BID)
  3. LAMOTRIGINE [Suspect]
     Active Substance: LAMOTRIGINE
     Dosage: 200 MILLIGRAM, 2X/DAY (BID)
  4. LAMOTRIGINE [Suspect]
     Active Substance: LAMOTRIGINE
     Dosage: 225 MILLIGRAM, 2X/DAY (BID)
  5. ESTRADIOL [Concomitant]
     Active Substance: ESTRADIOL
     Indication: Gender dysphoria
     Dosage: 0.05 MILLIGRAM/DAY (TWICE-WEEKLY PATCH)
  6. ESTRADIOL [Concomitant]
     Active Substance: ESTRADIOL
     Dosage: 0.1 MILLIGRAM/DAY (PATCH)
  7. ESTRADIOL [Concomitant]
     Active Substance: ESTRADIOL
     Dosage: 0.15 MILLIGRAM/DAY (PATCH)
  8. PROGESTERONE [Concomitant]
     Active Substance: PROGESTERONE
     Indication: Gender dysphoria
     Dosage: 100 MILLIGRAM, DAILY

REACTIONS (3)
  - Seizure [Unknown]
  - Multiple-drug resistance [Unknown]
  - Product dose omission issue [Unknown]
